FAERS Safety Report 6307466-0 (Version None)
Quarter: 2009Q3

REPORT INFORMATION
  Report Type: 
  Country: None (occurrence: None)
  Receive Date: 20090813
  Receipt Date: 20090805
  Transmission Date: 20100115
  Serious: Yes (Hospitalization)
  Sender: FDA-Public Use
  Company Number: BR-ROCHE-642659

PATIENT
  Age: 66 Year
  Sex: Female
  Weight: 65 kg

DRUGS (2)
  1. XELODA [Suspect]
     Indication: COLON CANCER STAGE II
     Route: 048
     Dates: start: 20090601, end: 20090606
  2. XELODA [Suspect]
     Route: 048
     Dates: start: 20090610, end: 20090612

REACTIONS (16)
  - ALOPECIA [None]
  - ASTHENIA [None]
  - BONE MARROW FAILURE [None]
  - DIARRHOEA [None]
  - ECCHYMOSIS [None]
  - ELECTROLYTE IMBALANCE [None]
  - FEBRILE NEUTROPENIA [None]
  - HAEMATOMA [None]
  - HYPOALBUMINAEMIA [None]
  - HYPOTENSION [None]
  - MALNUTRITION [None]
  - MUCOSAL INFLAMMATION [None]
  - PALMAR-PLANTAR ERYTHRODYSAESTHESIA SYNDROME [None]
  - PLATELET COUNT DECREASED [None]
  - SEPSIS [None]
  - SKIN HYPERPIGMENTATION [None]
